FAERS Safety Report 9612541 (Version 1)
Quarter: 2013Q4

REPORT INFORMATION
  Report Type: Spontaneous
  Country: US (occurrence: None)
  Receive Date: 20131008
  Receipt Date: 20131008
  Transmission Date: 20140711
  Serious: Yes (Other)
  Sender: FDA-Public Use
  Company Number: 20130521

PATIENT
  Age: 15 Year
  Sex: Female

DRUGS (2)
  1. VENOFER [Suspect]
     Indication: BLOOD IRON DECREASED
     Dosage: SEE NARRATIVE?20 MG/ML, INTRAVENOUS
     Route: 042
     Dates: start: 20130709, end: 20130825
  2. ZOFRAN (ONDANSETRON HYDROCHLORIDE) [Concomitant]

REACTIONS (1)
  - Haemoglobin decreased [None]
